FAERS Safety Report 14665486 (Version 3)
Quarter: 2019Q1

REPORT INFORMATION
  Report Type: Spontaneous
  Country: FR (occurrence: FR)
  Receive Date: 20180321
  Receipt Date: 20190117
  Transmission Date: 20190417
  Serious: Yes (Death, Life-Threatening, Hospitalization, Other)
  Sender: FDA-Public Use
  Company Number: FR-AMGEN-FRACT2018034549

PATIENT
  Age: 47 Year
  Sex: Female
  Weight: 45 kg

DRUGS (29)
  1. OROCAL D3 [Concomitant]
     Active Substance: CALCIUM CARBONATE\CHOLECALCIFEROL
     Indication: CALCIUM DEFICIENCY
     Dosage: 1 DF, BID
     Route: 065
     Dates: start: 20150722
  2. KETOPROFEN. [Concomitant]
     Active Substance: KETOPROFEN
     Indication: INFLAMMATION
  3. OXYNORM [Concomitant]
     Active Substance: OXYCODONE HYDROCHLORIDE
     Indication: PAIN
     Dosage: 5 MG UP TO 6 DF ONCE DAILY, AS NECESSARY
     Route: 048
     Dates: start: 20151014
  4. XELODA [Suspect]
     Active Substance: CAPECITABINE
     Indication: PANCREATIC NEUROENDOCRINE TUMOUR METASTATIC
     Dosage: UNK
     Route: 065
     Dates: start: 20140513, end: 20140620
  5. INNOHEP [Concomitant]
     Active Substance: TINZAPARIN SODIUM
     Indication: PORTAL VEIN THROMBOSIS
     Dosage: 0.4 ML, QD
     Route: 058
     Dates: start: 20151014
  6. MOVICOL [Concomitant]
     Active Substance: POLYETHYLENE GLYCOL 3350\POTASSIUM CHLORIDE\SODIUM BICARBONATE\SODIUM CHLORIDE
     Indication: CONSTIPATION
     Dosage: 2 TO 4 BAGS, ONCE DAILY
     Route: 048
  7. XGEVA [Suspect]
     Active Substance: DENOSUMAB
     Indication: PANCREATIC CARCINOMA
  8. SUTENT [Suspect]
     Active Substance: SUNITINIB MALATE
     Indication: PANCREATIC NEUROENDOCRINE TUMOUR METASTATIC
     Dosage: 37.5 MG, QD
     Route: 065
     Dates: start: 20151105, end: 20160114
  9. SOMATULINE LP [Suspect]
     Active Substance: LANREOTIDE ACETATE
     Indication: PANCREATIC CARCINOMA
  10. KETOPROFEN. [Concomitant]
     Active Substance: KETOPROFEN
     Indication: PAIN
     Dosage: 100 MG, BID (MORNING AND EVENING)
     Route: 048
  11. AFINITOR [Suspect]
     Active Substance: EVEROLIMUS
     Indication: PANCREATIC CARCINOMA
  12. OXYCONTIN [Concomitant]
     Active Substance: OXYCODONE HYDROCHLORIDE
     Indication: PAIN
     Dosage: 30 MG, BID
     Route: 048
     Dates: start: 20151014
  13. LAROXYL [Concomitant]
     Active Substance: AMITRIPTYLINE HYDROCHLORIDE
     Indication: NEURALGIA
     Dosage: 25 GTT, QD IN EVENING
     Route: 048
     Dates: start: 20150902
  14. INNOHEP [Concomitant]
     Active Substance: TINZAPARIN SODIUM
     Indication: THROMBOSIS
  15. AFINITOR [Suspect]
     Active Substance: EVEROLIMUS
     Indication: PANCREATIC NEUROENDOCRINE TUMOUR METASTATIC
     Dosage: 10 MG, QD
     Route: 065
     Dates: start: 20150804, end: 20151019
  16. SOMATULINE LP [Suspect]
     Active Substance: LANREOTIDE ACETATE
     Indication: PANCREATIC NEUROENDOCRINE TUMOUR METASTATIC
     Dosage: 120 MG, Q4WK
     Route: 065
     Dates: start: 20140414
  17. LAROXYL [Concomitant]
     Active Substance: AMITRIPTYLINE HYDROCHLORIDE
     Indication: DEPRESSION
  18. XELODA [Suspect]
     Active Substance: CAPECITABINE
     Dosage: 800 MG/M2, QD
     Route: 065
     Dates: start: 20140715, end: 20150722
  19. XGEVA [Suspect]
     Active Substance: DENOSUMAB
     Indication: PANCREATIC NEUROENDOCRINE TUMOUR METASTATIC
     Dosage: 120 MG, Q4WK
     Route: 065
     Dates: start: 201405
  20. NEULASTA [Concomitant]
     Active Substance: PEGFILGRASTIM
     Indication: PROPHYLAXIS
     Dosage: UNK
     Route: 065
  21. OROCAL D3 [Concomitant]
     Active Substance: CALCIUM CARBONATE\CHOLECALCIFEROL
     Indication: MINERAL SUPPLEMENTATION
  22. PARACETAMOL [Concomitant]
     Active Substance: ACETAMINOPHEN
     Indication: BACK PAIN
     Dosage: UNK
     Route: 048
  23. PARACETAMOL [Concomitant]
     Active Substance: ACETAMINOPHEN
     Indication: PAIN
  24. KETOPROFEN. [Concomitant]
     Active Substance: KETOPROFEN
     Indication: PROPHYLAXIS
  25. ACTISKENAN [Concomitant]
     Active Substance: MORPHINE SULFATE
     Indication: BACK PAIN
     Dosage: UNK
     Route: 048
  26. SUTENT [Suspect]
     Active Substance: SUNITINIB MALATE
     Indication: PANCREATIC CARCINOMA
  27. TEMODAL [Suspect]
     Active Substance: TEMOZOLOMIDE
     Indication: PANCREATIC NEUROENDOCRINE TUMOUR METASTATIC
     Dosage: 200 MG/M2
     Route: 065
     Dates: start: 20140522, end: 20140620
  28. TEMODAL [Suspect]
     Active Substance: TEMOZOLOMIDE
     Indication: PANCREATIC CARCINOMA
     Dosage: 210 MG/M2, QD
     Route: 065
     Dates: start: 20140715, end: 20150722
  29. BI-PROFENID [Concomitant]
     Active Substance: KETOPROFEN
     Indication: BACK PAIN
     Dosage: UNK
     Route: 048

REACTIONS (17)
  - Diarrhoea [Recovered/Resolved]
  - Abnormal faeces [Unknown]
  - Rash [Recovered/Resolved]
  - Haematochezia [Unknown]
  - Oedema peripheral [Not Recovered/Not Resolved]
  - Abdominal distension [Unknown]
  - General physical health deterioration [Fatal]
  - Constipation [Recovered/Resolved]
  - Stomatitis [Recovered/Resolved]
  - Nausea [Recovered/Resolved]
  - Vomiting [Recovered/Resolved]
  - Faecaloma [Recovered/Resolved]
  - Abdominal discomfort [Unknown]
  - Weight increased [Unknown]
  - Tachycardia [Recovered/Resolved]
  - Abdominal pain [Unknown]
  - Asthenia [Recovered/Resolved]

NARRATIVE: CASE EVENT DATE: 201508
